FAERS Safety Report 10544999 (Version 1)
Quarter: 2014Q4

REPORT INFORMATION
  Report Type: Spontaneous
  Country: BR (occurrence: BR)
  Receive Date: 20141027
  Receipt Date: 20141027
  Transmission Date: 20150529
  Serious: Yes (Other)
  Sender: FDA-Public Use
  Company Number: BR-B.I. PHARMACEUTICALS,INC./RIDGEFIELD-2014-BI-51071BR

PATIENT
  Age: 76 Year
  Sex: Female
  Weight: 83 kg

DRUGS (2)
  1. BEROTEC [Suspect]
     Active Substance: FENOTEROL HYDROBROMIDE
     Indication: BRONCHITIS
     Route: 055
  2. ATROVENT [Suspect]
     Active Substance: IPRATROPIUM BROMIDE
     Indication: BRONCHITIS
     Route: 055
     Dates: start: 20141002, end: 20141002

REACTIONS (4)
  - Pulmonary congestion [Recovered/Resolved]
  - Cardiac arrest [Recovered/Resolved]
  - Drug ineffective [Unknown]
  - Drug ineffective [Not Recovered/Not Resolved]

NARRATIVE: CASE EVENT DATE: 20141002
